FAERS Safety Report 7906333-6 (Version None)
Quarter: 2011Q4

REPORT INFORMATION
  Report Type: 
  Country: None (occurrence: None)
  Receive Date: 20111109
  Receipt Date: 20111109
  Transmission Date: 20120403
  Serious: Yes (Other)
  Sender: FDA-Public Use
  Company Number: None

PATIENT
  Age: 52 Year
  Sex: Female
  Weight: 79.8331 kg

DRUGS (2)
  1. LEVOFLOXACIN [Suspect]
     Indication: PELVIC INFECTION
     Dosage: 500 MG DAILY PO
     Route: 048
     Dates: start: 20111013, end: 20111020
  2. FLAGYL [Concomitant]

REACTIONS (1)
  - TENDONITIS [None]
